FAERS Safety Report 23028461 (Version 1)
Quarter: 2023Q4

REPORT INFORMATION
  Report Type: Spontaneous
  Country: US (occurrence: None)
  Receive Date: 20231004
  Receipt Date: 20231004
  Transmission Date: 20240110
  Serious: No
  Sender: FDA-Public Use
  Company Number: None

PATIENT
  Sex: Male

DRUGS (1)
  1. HUMIRA [Suspect]
     Active Substance: ADALIMUMAB
     Indication: Ankylosing spondylitis
     Dosage: FREQUENCY : EVERY OTHER WEEK;?
     Route: 058
     Dates: start: 202305

REACTIONS (7)
  - Condition aggravated [None]
  - Ankylosing spondylitis [None]
  - Drug ineffective [None]
  - Gastrointestinal disorder [None]
  - Respiratory tract congestion [None]
  - Oropharyngeal pain [None]
  - Immune system disorder [None]
